FAERS Safety Report 15771742 (Version 4)
Quarter: 2019Q1

REPORT INFORMATION
  Report Type: Report from Study
  Country: CA (occurrence: CA)
  Receive Date: 20181228
  Receipt Date: 20190305
  Transmission Date: 20190417
  Serious: Yes (Other)
  Sender: FDA-Public Use
  Company Number: CA-BRISTOL-MYERS SQUIBB COMPANY-BMS-2018-048092

PATIENT
  Sex: Male

DRUGS (1)
  1. ABATACEPT [Suspect]
     Active Substance: ABATACEPT
     Indication: PRODUCT USED FOR UNKNOWN INDICATION
     Dosage: 125 MG, QWK
     Route: 058
     Dates: start: 20171117

REACTIONS (7)
  - Arthralgia [Unknown]
  - Infection [Unknown]
  - Type 2 diabetes mellitus [Unknown]
  - Sepsis [Unknown]
  - Synovitis [Unknown]
  - Medical device site eczema [Recovered/Resolved]
  - Lower limb fracture [Recovering/Resolving]
